FAERS Safety Report 19206875 (Version 4)
Quarter: 2022Q1

REPORT INFORMATION
  Report Type: Report from Study
  Country: RU (occurrence: RU)
  Receive Date: 20210430
  Receipt Date: 20220216
  Transmission Date: 20220423
  Serious: Yes (Hospitalization, Other)
  Sender: FDA-Public Use
  Company Number: NVSC2021RU094795

PATIENT
  Age: 40 Year
  Sex: Male
  Weight: 59 kg

DRUGS (9)
  1. SECUKINUMAB [Suspect]
     Active Substance: SECUKINUMAB
     Indication: Spinal osteoarthritis
     Dosage: 100 ML, QMO
     Route: 042
     Dates: start: 20210303, end: 20210331
  2. SECUKINUMAB [Suspect]
     Active Substance: SECUKINUMAB
     Indication: Ankylosing spondylitis
     Dosage: 10.9 ML, Q4W
     Route: 042
     Dates: start: 20210511
  3. SECUKINUMAB [Suspect]
     Active Substance: SECUKINUMAB
     Indication: Axial spondyloarthritis
  4. PLACEBO [Suspect]
     Active Substance: UNSPECIFIED INGREDIENT
     Indication: Spinal osteoarthritis
     Dosage: UNK
     Route: 042
     Dates: start: 20201014
  5. PLACEBO [Suspect]
     Active Substance: UNSPECIFIED INGREDIENT
     Indication: Ankylosing spondylitis
  6. PLACEBO [Suspect]
     Active Substance: UNSPECIFIED INGREDIENT
     Indication: Axial spondyloarthritis
  7. CALCIUM CARBONATE [Concomitant]
     Active Substance: CALCIUM CARBONATE
     Indication: Spondylitis
     Dosage: UNK
     Route: 065
     Dates: start: 20181018
  8. NIMESULIDE [Concomitant]
     Active Substance: NIMESULIDE
     Indication: Spondylitis
     Dosage: UNK
     Route: 065
     Dates: start: 20190523
  9. OMEPRAZOLE [Concomitant]
     Active Substance: OMEPRAZOLE
     Indication: General physical condition
     Dosage: UNK
     Route: 065
     Dates: start: 20180815

REACTIONS (1)
  - Parainfluenzae virus infection [Recovered/Resolved]

NARRATIVE: CASE EVENT DATE: 20210425
